FAERS Safety Report 16818755 (Version 3)
Quarter: 2021Q4

REPORT INFORMATION
  Report Type: Spontaneous
  Country: VN (occurrence: VN)
  Receive Date: 20190917
  Receipt Date: 20211216
  Transmission Date: 20220304
  Serious: Yes (Hospitalization, Other)
  Sender: FDA-Public Use
  Company Number: VN-ASTELLAS-2019US036470

PATIENT
  Age: 70 Year
  Sex: Male

DRUGS (8)
  1. TACROLIMUS [Suspect]
     Active Substance: TACROLIMUS
     Indication: Prophylaxis against transplant rejection
     Dosage: 2.5 MG, OTHER (2.5 MG PER DAY, DIVIDED INTO 2 TIMES, 1.5 MG IN MORNING, 1 MG IN EVENING)
     Route: 048
     Dates: start: 201207
  2. TACROLIMUS [Suspect]
     Active Substance: TACROLIMUS
     Dosage: 3 MG, OTHER (3 MG PER DAY, DIVIDED INTO 2 TIMES)
     Route: 048
     Dates: start: 201702
  3. TACROLIMUS [Suspect]
     Active Substance: TACROLIMUS
     Indication: Prophylaxis against transplant rejection
     Route: 048
     Dates: start: 201612
  4. TACROLIMUS [Suspect]
     Active Substance: TACROLIMUS
     Route: 048
  5. TACROLIMUS [Suspect]
     Active Substance: TACROLIMUS
     Route: 048
     Dates: end: 201702
  6. PREDNISOLONE [Concomitant]
     Active Substance: PREDNISOLONE
     Indication: Product used for unknown indication
     Dosage: 1.5 G, OTHER (1.5 G PER DAY, DIVIDED INTO 2 TIMES)
     Route: 065
  7. CELLCEPT [Concomitant]
     Active Substance: MYCOPHENOLATE MOFETIL
     Indication: Product used for unknown indication
     Dosage: 1.5 G, OTHER (1.5 PER DAY, DIVIDED INTO 2 TIMES)
     Route: 065
  8. BASILIXIMAB [Concomitant]
     Active Substance: BASILIXIMAB
     Indication: Product used for unknown indication
     Dosage: UNK UNK, UNKNOWN FREQ.
     Route: 065

REACTIONS (4)
  - Complications of transplanted kidney [Recovering/Resolving]
  - Red blood cells urine [Recovering/Resolving]
  - Hyperglycaemia [Unknown]
  - Urinary incontinence [Unknown]
